FAERS Safety Report 4906610-7 (Version None)
Quarter: 2006Q1

REPORT INFORMATION
  Report Type: 
  Country: None (occurrence: None)
  Receive Date: 20060209
  Receipt Date: 20060105
  Transmission Date: 20060701
  Serious: Yes (Hospitalization)
  Sender: FDA-Public Use
  Company Number: FR-GLAXOSMITHKLINE-B0406052A

PATIENT
  Age: 76 Year
  Sex: Female
  Weight: 61 kg

DRUGS (9)
  1. ALKERAN [Suspect]
     Indication: PARAPROTEINAEMIA
     Route: 042
     Dates: start: 20051017, end: 20051021
  2. INNOHEP [Suspect]
     Indication: PULMONARY EMBOLISM
     Dosage: 1UNIT PER DAY
     Dates: start: 20050927, end: 20051026
  3. ZOMETA [Suspect]
     Indication: CALCIUM METABOLISM DISORDER
     Dosage: 4MG CYCLIC
     Route: 042
     Dates: start: 20051017, end: 20051021
  4. MOPRAL [Suspect]
     Indication: PROPHYLAXIS
     Dosage: 20MG PER DAY
     Route: 048
     Dates: start: 20050927, end: 20051026
  5. GARDENAL [Suspect]
     Indication: DRUG USE FOR UNKNOWN INDICATION
     Route: 048
     Dates: start: 20050927, end: 20051026
  6. COZAAR [Concomitant]
     Indication: ESSENTIAL HYPERTENSION
     Dosage: 1UNIT PER DAY
     Route: 048
     Dates: end: 20051026
  7. DEXAMETHASONE [Concomitant]
     Indication: CHEMOTHERAPY
     Route: 065
     Dates: start: 20051017
  8. ORELOX [Concomitant]
     Indication: SYSTEMIC ANTIBACTERIAL THERAPY
     Route: 065
  9. CIFLOX [Concomitant]
     Indication: SYSTEMIC ANTIBACTERIAL THERAPY
     Route: 065

REACTIONS (8)
  - DRUG RASH WITH EOSINOPHILIA AND SYSTEMIC SYMPTOMS [None]
  - EOSINOPHILIA [None]
  - GENERAL PHYSICAL HEALTH DETERIORATION [None]
  - HYPERSENSITIVITY [None]
  - PYREXIA [None]
  - RASH [None]
  - SKIN EXFOLIATION [None]
  - TOXIC SKIN ERUPTION [None]
